FAERS Safety Report 13304486 (Version 1)
Quarter: 2017Q1

REPORT INFORMATION
  Report Type: Spontaneous
  Country: MQ (occurrence: FR)
  Receive Date: 20170308
  Receipt Date: 20170308
  Transmission Date: 20170428
  Serious: Yes (Hospitalization, Other)
  Sender: FDA-Public Use
  Company Number: MQ-ASTRAZENECA-2017SE19646

PATIENT
  Age: 3173 Week
  Sex: Female

DRUGS (2)
  1. IRESSA [Suspect]
     Active Substance: GEFITINIB
     Indication: EGFR GENE MUTATION
     Route: 048
  2. TAGRISSO [Suspect]
     Active Substance: OSIMERTINIB
     Indication: EGFR GENE MUTATION
     Dosage: 80.0MG UNKNOWN
     Route: 048
     Dates: start: 20161115, end: 20170206

REACTIONS (3)
  - Interstitial lung disease [Unknown]
  - Malignant neoplasm progression [Unknown]
  - Tinnitus [Unknown]

NARRATIVE: CASE EVENT DATE: 20161226
